FAERS Safety Report 6793298-6 (Version None)
Quarter: 2010Q2

REPORT INFORMATION
  Report Type: 
  Country: None (occurrence: None)
  Receive Date: 20100624
  Receipt Date: 20091030
  Transmission Date: 20101027
  Serious: Yes (Other)
  Sender: FDA-Public Use
  Company Number: US-MYLANLABS-2009S1019169

PATIENT
  Age: 47 Year
  Sex: Male

DRUGS (11)
  1. CLOZAPINE [Suspect]
     Route: 048
     Dates: end: 20091009
  2. CLOZAPINE [Suspect]
     Route: 048
     Dates: start: 20091025
  3. DEPAKOTE [Concomitant]
  4. DEPAKOTE [Concomitant]
  5. ATIVAN [Concomitant]
  6. AMANTADINE HCL [Concomitant]
  7. GEODON [Concomitant]
  8. SIMVASTATIN [Concomitant]
  9. LOPRESSOR [Concomitant]
  10. ALLOPURINOL [Concomitant]
  11. SYNTHROID [Concomitant]

REACTIONS (1)
  - GRANULOCYTOPENIA [None]
